FAERS Safety Report 7785234-0 (Version None)
Quarter: 2011Q3

REPORT INFORMATION
  Report Type: 
  Country: None (occurrence: None)
  Receive Date: 20110929
  Receipt Date: 20110413
  Transmission Date: 20111222
  Serious: Yes (Other)
  Sender: FDA-Public Use
  Company Number: US-BAYER-201037050NA

PATIENT
  Age: 35 Year
  Sex: Female
  Weight: 96.599 kg

DRUGS (12)
  1. MULTIHANCE [Suspect]
     Indication: PRODUCT USED FOR UNKNOWN INDICATION
  2. PLENDIL [Concomitant]
  3. OMNISCAN [Suspect]
     Indication: PRODUCT USED FOR UNKNOWN INDICATION
  4. RENAGEL [Concomitant]
  5. INSULIN [Concomitant]
  6. ACTOS [Concomitant]
  7. PROHANCE [Suspect]
     Indication: PRODUCT USED FOR UNKNOWN INDICATION
  8. CLONIDINE [Concomitant]
  9. LISINOPRIL [Concomitant]
  10. MAGNEVIST [Suspect]
     Indication: PRODUCT USED FOR UNKNOWN INDICATION
  11. OPTIMARK [Suspect]
     Indication: PRODUCT USED FOR UNKNOWN INDICATION
  12. ZESTRIL [Concomitant]

REACTIONS (15)
  - DEFORMITY [None]
  - SCAR [None]
  - PAIN OF SKIN [None]
  - SKIN DISCOLOURATION [None]
  - GAIT DISTURBANCE [None]
  - PAIN IN EXTREMITY [None]
  - ARTHRALGIA [None]
  - SUBCUTANEOUS NODULE [None]
  - PAIN [None]
  - NEPHROGENIC SYSTEMIC FIBROSIS [None]
  - SKIN HYPERTROPHY [None]
  - GENERAL PHYSICAL HEALTH DETERIORATION [None]
  - ERYTHEMA [None]
  - OEDEMA PERIPHERAL [None]
  - SKIN DISCOMFORT [None]
